FAERS Safety Report 13976108 (Version 1)
Quarter: 2017Q3

REPORT INFORMATION
  Report Type: Spontaneous
  Country: AT (occurrence: AT)
  Receive Date: 20170915
  Receipt Date: 20170915
  Transmission Date: 20171128
  Serious: Yes (Hospitalization, Other)
  Sender: FDA-Public Use
  Company Number: AT-INDICUS PHARMA-000493

PATIENT
  Age: 79 Year
  Sex: Female

DRUGS (5)
  1. GABAPENTIN. [Concomitant]
     Active Substance: GABAPENTIN
  2. METFORMIN [Suspect]
     Active Substance: METFORMIN HYDROCHLORIDE
     Indication: PRODUCT USED FOR UNKNOWN INDICATION
     Dosage: 1000 MG B.I.D.
  3. PHENPROCOUMON [Concomitant]
     Active Substance: PHENPROCOUMON
  4. CANDESARTAN. [Concomitant]
     Active Substance: CANDESARTAN
  5. PANTOPRAZOLE [Concomitant]
     Active Substance: PANTOPRAZOLE

REACTIONS (2)
  - Lactic acidosis [Recovering/Resolving]
  - Ketoacidosis [Recovering/Resolving]
